FAERS Safety Report 23406570 (Version 1)
Quarter: 2024Q1

REPORT INFORMATION
  Report Type: Spontaneous
  Country: US (occurrence: None)
  Receive Date: 20240115
  Receipt Date: 20240115
  Transmission Date: 20240410
  Serious: Yes (unspecified)
  Sender: FDA-Public Use
  Company Number: None

PATIENT
  Age: 78 Year
  Sex: Female
  Weight: 47.63 kg

DRUGS (5)
  1. DEXTENZA [Suspect]
     Active Substance: DEXAMETHASONE
  2. ATORVASTATIN [Concomitant]
     Active Substance: ATORVASTATIN
  3. LISINOPRIL [Concomitant]
     Active Substance: LISINOPRIL
  4. VITAMINS [Concomitant]
     Active Substance: VITAMINS
  5. CALTRATE [Concomitant]
     Active Substance: CALCIUM CARBONATE

REACTIONS (6)
  - Post procedural complication [None]
  - Lacrimation increased [None]
  - Ocular discomfort [None]
  - Drug ineffective [None]
  - Dacryostenosis acquired [None]
  - Product label issue [None]

NARRATIVE: CASE EVENT DATE: 20231102
